FAERS Safety Report 24097821 (Version 1)
Quarter: 2024Q3

REPORT INFORMATION
  Report Type: Spontaneous
  Country: US (occurrence: US)
  Receive Date: 20240716
  Receipt Date: 20240716
  Transmission Date: 20241017
  Serious: No
  Sender: BAUSCH AND LOMB
  Company Number: US-BAUSCH-BL-2024-010622

PATIENT
  Age: 70 Year
  Sex: Female

DRUGS (3)
  1. SILIQ [Suspect]
     Active Substance: BRODALUMAB
     Indication: Psoriasis
     Route: 065
     Dates: start: 20240710
  2. SILIQ [Suspect]
     Active Substance: BRODALUMAB
     Indication: Sjogren^s syndrome
  3. SILIQ [Suspect]
     Active Substance: BRODALUMAB
     Indication: Coeliac disease

REACTIONS (4)
  - Insomnia [Unknown]
  - Rhinorrhoea [Unknown]
  - Influenza like illness [Unknown]
  - Myalgia [Unknown]

NARRATIVE: CASE EVENT DATE: 20240710
